FAERS Safety Report 8977428 (Version 3)
Quarter: 2013Q1

REPORT INFORMATION
  Report Type: Spontaneous
  Country: JP (occurrence: JP)
  Receive Date: 20121219
  Receipt Date: 20130228
  Transmission Date: 20140127
  Serious: Yes (Other)
  Sender: FDA-Public Use
  Company Number: JP-ELI_LILLY_AND_COMPANY-JP201212004756

PATIENT
  Age: 53 Year
  Sex: Female
  Weight: 51.2 kg

DRUGS (15)
  1. ZYPREXA INTRA-MUSCULAR INJECTION [Suspect]
     Indication: SCHIZOPHRENIA
     Dosage: 10 MG, SINGLE
     Route: 030
     Dates: start: 20121211, end: 20121212
  2. ABILIFY [Interacting]
     Indication: SCHIZOPHRENIA
     Dosage: 12 ML, PRN
     Route: 048
     Dates: start: 20121120
  3. LEVOTOMIN [Interacting]
     Indication: SCHIZOPHRENIA
     Dosage: 50 MG, UNK
     Route: 048
  4. HALOPERIDOL [Interacting]
     Indication: SCHIZOPHRENIA
     Dosage: 5 MG, SINGLE
     Route: 030
     Dates: start: 20121211
  5. GASCON [Concomitant]
     Indication: CONSTIPATION
     Dosage: 40 MG, TID
     Route: 048
     Dates: start: 20100422
  6. GASMOTIN [Concomitant]
     Indication: CONSTIPATION
     Dosage: 5 MG, TID
     Route: 048
     Dates: start: 20100422
  7. DAIKENTYUTO [Concomitant]
     Indication: CONSTIPATION
     Dosage: 5 G, TID
     Route: 048
     Dates: start: 20100422
  8. MAGNESIUM OXIDE [Concomitant]
     Indication: CONSTIPATION
     Dosage: 0.5 G, TID
     Route: 048
     Dates: start: 20060907
  9. SOLANAX [Concomitant]
     Indication: SCHIZOPHRENIA
     Dosage: 2.4 MG, TID
     Route: 048
     Dates: start: 20040421
  10. SEROQUEL [Concomitant]
     Indication: SCHIZOPHRENIA
     Dosage: 75 MG, TID
     Route: 048
     Dates: start: 20121205
  11. FLUNITRAZEPAM [Concomitant]
     Indication: SCHIZOPHRENIA
     Dosage: 1 MG, QD
     Route: 048
     Dates: start: 20020610
  12. BFLUID [Concomitant]
     Indication: MEGACOLON
     Dosage: 500 ML, QD
     Route: 042
     Dates: start: 20121119, end: 20130109
  13. PROSTARMON F [Concomitant]
     Indication: ILEUS
     Dosage: 1000 MG, QD
     Route: 042
     Dates: start: 20121201, end: 20121225
  14. PANTOSIN [Concomitant]
     Indication: ILEUS
     Dosage: 100 MG, QD
     Route: 042
     Dates: start: 20121119, end: 20130109
  15. HIBERNA [Concomitant]
     Indication: SCHIZOPHRENIA
     Dosage: 25 MG, UNK
     Route: 048

REACTIONS (4)
  - Altered state of consciousness [Recovered/Resolved]
  - Vomiting [Recovered/Resolved]
  - Pallor [Recovered/Resolved]
  - Blood pressure decreased [Recovered/Resolved]
